FAERS Safety Report 4563865-9 (Version None)
Quarter: 2005Q1

REPORT INFORMATION
  Report Type: 
  Country: None (occurrence: None)
  Receive Date: 20050128
  Receipt Date: 20050117
  Transmission Date: 20050727
  Serious: Yes (Hospitalization, Other)
  Sender: FDA-Public Use
  Company Number: PHBS2005JP01175

PATIENT
  Age: 56 Year
  Sex: Female

DRUGS (2)
  1. FLUITRAN [Suspect]
     Route: 048
  2. DIOVAN [Suspect]
     Indication: HYPERTENSION
     Dosage: 80 MG/DAY
     Route: 048
     Dates: start: 20041201

REACTIONS (4)
  - BLOOD PRESSURE DECREASED [None]
  - PRURITUS GENERALISED [None]
  - RASH GENERALISED [None]
  - SHOCK [None]
